FAERS Safety Report 6555603-5 (Version None)
Quarter: 2010Q1

REPORT INFORMATION
  Report Type: 
  Country: None (occurrence: None)
  Receive Date: 20100128
  Receipt Date: 20100119
  Transmission Date: 20100710
  Serious: Yes (Hospitalization)
  Sender: FDA-Public Use
  Company Number: FR-WYE-G05371510

PATIENT
  Sex: Female

DRUGS (5)
  1. EFFEXOR [Suspect]
     Indication: ANXIETY
     Dosage: 112.5 MG TOTAL DAILY, THEN FIRST REDUCED TO 75 MG DAILY ON 19-AUG AND THEN TO 37.5 MG ON 01-SEP-2009
     Route: 048
  2. TEMESTA [Suspect]
     Indication: DEPRESSION
     Dosage: 3. 75 MG TOTAL DAILY
     Route: 048
     Dates: end: 20090901
  3. MEPRONIZINE [Concomitant]
     Route: 048
  4. LEVOTHYROXINE SODIUM [Concomitant]
     Indication: HYPOTHYROIDISM
     Dosage: 87.5 MG DAILY
     Route: 048
  5. NEXIUM [Concomitant]
     Indication: OESOPHAGEAL ULCER
     Route: 048

REACTIONS (17)
  - ANAEMIA FOLATE DEFICIENCY [None]
  - ANXIETY [None]
  - APLASTIC ANAEMIA [None]
  - BACTERIAL PYELONEPHRITIS [None]
  - CONDITION AGGRAVATED [None]
  - CONFUSIONAL STATE [None]
  - DISORIENTATION [None]
  - ESCHERICHIA URINARY TRACT INFECTION [None]
  - FATIGUE [None]
  - HYPOKALAEMIA [None]
  - HYPONATRAEMIA [None]
  - MALAISE [None]
  - METABOLIC ACIDOSIS [None]
  - NORMOCHROMIC NORMOCYTIC ANAEMIA [None]
  - RESPIRATORY ALKALOSIS [None]
  - SPEECH DISORDER [None]
  - TACHYCARDIA [None]
